FAERS Safety Report 7858847-5 (Version None)
Quarter: 2011Q4

REPORT INFORMATION
  Report Type: 
  Country: None (occurrence: None)
  Receive Date: 20111027
  Receipt Date: 20111014
  Transmission Date: 20120403
  Serious: Yes (Other)
  Sender: FDA-Public Use
  Company Number: CA-JNJFOC-20111011030

PATIENT
  Age: 27 Year
  Sex: Female

DRUGS (3)
  1. LITHIUM CITRATE [Suspect]
     Indication: BIPOLAR DISORDER
     Route: 065
  2. RISPERIDONE [Suspect]
     Route: 065
  3. RISPERIDONE [Suspect]
     Indication: BIPOLAR DISORDER
     Route: 030

REACTIONS (1)
  - DIABETES INSIPIDUS [None]
